FAERS Safety Report 9394833 (Version 1)
Quarter: 2013Q3

REPORT INFORMATION
  Report Type: Spontaneous
  Country: US (occurrence: US)
  Receive Date: 20130711
  Receipt Date: 20130711
  Transmission Date: 20140515
  Serious: Yes (Other)
  Sender: FDA-Public Use
  Company Number: US-JNJFOC-20130704974

PATIENT
  Sex: Female
  Weight: 92.99 kg

DRUGS (6)
  1. TOPAMAX [Suspect]
     Indication: COMPLEX PARTIAL SEIZURES
     Route: 048
  2. TOPAMAX [Suspect]
     Indication: MIGRAINE
     Route: 048
  3. VIMPAT [Suspect]
     Indication: MIGRAINE
     Route: 048
  4. VIMPAT [Suspect]
     Indication: COMPLEX PARTIAL SEIZURES
     Route: 048
  5. KLONOPIN [Suspect]
     Indication: PRODUCT USED FOR UNKNOWN INDICATION
     Route: 065
  6. COUMADIN [Concomitant]
     Indication: HYPERCOAGULATION
     Route: 065

REACTIONS (2)
  - Chorea [Unknown]
  - Exposure during pregnancy [Unknown]
